FAERS Safety Report 9681038 (Version 1)
Quarter: 2013Q4

REPORT INFORMATION
  Report Type: Spontaneous
  Country: US (occurrence: None)
  Receive Date: 20131108
  Receipt Date: 20131108
  Transmission Date: 20140711
  Serious: Yes (Hospitalization)
  Sender: FDA-Public Use
  Company Number: None

PATIENT
  Age: 78 Year
  Sex: Male
  Weight: 90.9 kg

DRUGS (1)
  1. FLUDROCORTISONE [Suspect]
     Indication: ORTHOSTATIC HYPOTENSION
     Dosage: MG
     Route: 048
     Dates: start: 20130319, end: 20130825

REACTIONS (3)
  - Local swelling [None]
  - Oedema peripheral [None]
  - Hypertension [None]
